FAERS Safety Report 22199512 (Version 3)
Quarter: 2024Q3

REPORT INFORMATION
  Report Type: Spontaneous
  Country: JP (occurrence: JP)
  Receive Date: 20230412
  Receipt Date: 20240730
  Transmission Date: 20241017
  Serious: Yes (Other)
  Sender: SANOFI AVENTIS
  Company Number: JP-SA-2023SA111431

PATIENT
  Age: 56 Year
  Sex: Female

DRUGS (1)
  1. DUPIXENT [Suspect]
     Active Substance: DUPILUMAB
     Indication: Chronic eosinophilic rhinosinusitis
     Dosage: UNK
     Route: 058

REACTIONS (7)
  - Eosinophilic granulomatosis with polyangiitis [Unknown]
  - Hyposmia [Unknown]
  - Malaise [Unknown]
  - Purpura [Unknown]
  - Oedema peripheral [Unknown]
  - Arthralgia [Unknown]
  - Muscular weakness [Unknown]
